FAERS Safety Report 12956108 (Version 2)
Quarter: 2019Q1

REPORT INFORMATION
  Report Type: Spontaneous
  Country: US (occurrence: US)
  Receive Date: 20161118
  Receipt Date: 20190125
  Transmission Date: 20190417
  Serious: No
  Sender: FDA-Public Use
  Company Number: US-JNJFOC-20161013503

PATIENT
  Sex: Female

DRUGS (1)
  1. TYLENOL EXTRA STRENGTH [Suspect]
     Active Substance: ACETAMINOPHEN
     Indication: SLEEP DISORDER THERAPY
     Dosage: 2 CAPLETS EVERY 4 HOURS
     Route: 048

REACTIONS (3)
  - Intentional product misuse [Unknown]
  - Abdominal pain upper [Unknown]
  - Intentional product use issue [Unknown]
